FAERS Safety Report 10088130 (Version 1)
Quarter: 2014Q2

REPORT INFORMATION
  Report Type: Other
  Country: GB (occurrence: GB)
  Receive Date: 20140421
  Receipt Date: 20140421
  Transmission Date: 20141212
  Serious: Yes (Other)
  Sender: FDA-Public Use
  Company Number: GB-SUN PHARMACEUTICAL INDUSTRIES LTD-2014SUN00839

PATIENT
  Sex: Male

DRUGS (3)
  1. BACLOFEN [Suspect]
     Indication: PRODUCT USED FOR UNKNOWN INDICATION
     Dosage: 110 UG/DAY
     Route: 037
  2. BACLOFEN [Suspect]
     Dosage: UNK UKN, UNK
     Route: 037
  3. BACLOFEN [Suspect]
     Dosage: DOSE LOWERED
     Route: 037

REACTIONS (6)
  - Respiratory depression [Recovering/Resolving]
  - Muscular weakness [Recovering/Resolving]
  - Therapeutic response changed [Unknown]
  - Adverse drug reaction [Recovering/Resolving]
  - Therapeutic response decreased [Not Recovered/Not Resolved]
  - Overdose [Recovering/Resolving]
